FAERS Safety Report 24120375 (Version 1)
Quarter: 2024Q3

REPORT INFORMATION
  Report Type: Spontaneous
  Country: JP (occurrence: JP)
  Receive Date: 20240722
  Receipt Date: 20240722
  Transmission Date: 20241016
  Serious: Yes (Other)
  Sender: RECORDATI
  Company Number: JP-ORPHANEU-2024005400

PATIENT

DRUGS (3)
  1. CARGLUMIC ACID [Suspect]
     Active Substance: CARGLUMIC ACID
     Indication: Propionic acidaemia
  2. CARGLUMIC ACID [Suspect]
     Active Substance: CARGLUMIC ACID
     Indication: Hyperammonaemia
  3. SODIUM BENZOATE [Concomitant]
     Active Substance: SODIUM BENZOATE
     Indication: Propionic acidaemia
     Dosage: UNK

REACTIONS (2)
  - Skin exfoliation [Recovering/Resolving]
  - Alopecia [Unknown]
